FAERS Safety Report 4950816-8 (Version None)
Quarter: 2006Q1

REPORT INFORMATION
  Report Type: 
  Country: None (occurrence: None)
  Receive Date: 20060322
  Receipt Date: 20060313
  Transmission Date: 20060701
  Serious: Yes (Hospitalization)
  Sender: FDA-Public Use
  Company Number: US-SANOFI-SYNTHELABO-A03200601356

PATIENT
  Age: 32 Year
  Sex: Female
  Weight: 47 kg

DRUGS (6)
  1. LEUPROLIDE ACETATE [Suspect]
     Indication: INFERTILITY
     Route: 065
  2. PROGESTERONE [Suspect]
     Indication: INFERTILITY
     Route: 067
  3. PREGNYL [Suspect]
     Indication: OVULATION INDUCTION
     Route: 058
  4. ORAL CONTRACEPTIVES NOS [Suspect]
     Indication: ASSISTED FERTILISATION
     Dosage: UNK
     Route: 048
  5. UROFOLLITROPIN [Suspect]
     Indication: ASSISTED FERTILISATION
     Route: 065
  6. MENOTROPINS [Suspect]
     Indication: ASSISTED FERTILISATION
     Route: 065

REACTIONS (8)
  - ABDOMINAL PAIN [None]
  - BLOOD SODIUM DECREASED [None]
  - DYSPNOEA [None]
  - JUGULAR VEIN THROMBOSIS [None]
  - OVARIAN HYPERSTIMULATION SYNDROME [None]
  - PLATELET COUNT INCREASED [None]
  - PROTEIN S ABNORMAL [None]
  - SUBCLAVIAN VEIN THROMBOSIS [None]
